FAERS Safety Report 9646160 (Version 1)
Quarter: 2013Q4

REPORT INFORMATION
  Report Type: Spontaneous
  Country: FR (occurrence: FR)
  Receive Date: 20131025
  Receipt Date: 20131025
  Transmission Date: 20140711
  Serious: Yes (Other)
  Sender: FDA-Public Use
  Company Number: FR-ABBVIE-13P-056-1157526-00

PATIENT
  Age: 40 Year
  Sex: Male

DRUGS (7)
  1. DEPAKINE CHRONO [Suspect]
     Indication: EPILEPSY
     Route: 048
  2. URBANYL [Suspect]
     Indication: EPILEPSY
     Route: 048
  3. ATORVASTATIN [Suspect]
     Indication: PRODUCT USED FOR UNKNOWN INDICATION
     Route: 048
  4. TROBALT [Suspect]
     Indication: EPILEPSY
     Route: 048
     Dates: start: 201304
  5. TEGRETOL [Suspect]
     Indication: EPILEPSY
     Route: 048
  6. ZEBINIX [Suspect]
     Indication: EPILEPSY
     Route: 048
  7. ZONEGRAN [Suspect]
     Indication: EPILEPSY
     Route: 048

REACTIONS (1)
  - Diplopia [Recovered/Resolved]
